FAERS Safety Report 6530810-6 (Version None)
Quarter: 2010Q1

REPORT INFORMATION
  Report Type: 
  Country: None (occurrence: None)
  Receive Date: 20100108
  Receipt Date: 20090619
  Transmission Date: 20100710
  Serious: No
  Sender: FDA-Public Use
  Company Number: A0772773A

PATIENT
  Age: 54 Year
  Sex: Male

DRUGS (1)
  1. LOVAZA [Suspect]
     Dosage: 2CAP TWICE PER DAY
     Route: 048
     Dates: start: 20090225

REACTIONS (2)
  - ABNORMAL DREAMS [None]
  - DYSGEUSIA [None]
